FAERS Safety Report 17312629 (Version 2)
Quarter: 2020Q3

REPORT INFORMATION
  Report Type: Other
  Country: JP (occurrence: JP)
  Receive Date: 20200123
  Receipt Date: 20200907
  Transmission Date: 20201102
  Serious: Yes (Hospitalization)
  Sender: FDA-Public Use
  Company Number: JP-ROCHE-2529740

PATIENT
  Age: 72 Year
  Sex: Male
  Weight: 56 kg

DRUGS (7)
  1. SOLU?MEDROL [Concomitant]
     Active Substance: METHYLPREDNISOLONE SODIUM SUCCINATE
     Dates: start: 20191105, end: 20191107
  2. PREDONINE [Concomitant]
     Active Substance: PREDNISOLONE
     Dates: start: 20191128, end: 20191204
  3. PREDONINE [Concomitant]
     Active Substance: PREDNISOLONE
     Dates: start: 20191119, end: 20191127
  4. SOLU?MEDROL [Concomitant]
     Active Substance: METHYLPREDNISOLONE SODIUM SUCCINATE
     Dates: start: 20191108, end: 20191118
  5. PREDONINE [Concomitant]
     Active Substance: PREDNISOLONE
     Dates: start: 20191205, end: 20191211
  6. ATEZOLIZUMAB. [Suspect]
     Active Substance: ATEZOLIZUMAB
     Indication: NON-SMALL CELL LUNG CANCER
     Route: 041
     Dates: start: 20190725, end: 20191017
  7. PREDONINE [Concomitant]
     Active Substance: PREDNISOLONE
     Dates: start: 20191212, end: 20191218

REACTIONS (1)
  - Interstitial lung disease [Recovered/Resolved]

NARRATIVE: CASE EVENT DATE: 20191103
